FAERS Safety Report 10312032 (Version 1)
Quarter: 2014Q3

REPORT INFORMATION
  Report Type: Spontaneous
  Country: CA (occurrence: None)
  Receive Date: 20140715
  Receipt Date: 20140715
  Transmission Date: 20150326
  Serious: Yes (Hospitalization)
  Sender: FDA-Public Use
  Company Number: AXC-2014-000428

PATIENT
  Age: 26 Year
  Sex: Male

DRUGS (4)
  1. OMEPRAZOLE (OMEPRAZOLE) UNKNOWN [Concomitant]
  2. SALOFALK [Suspect]
     Active Substance: MESALAMINE
     Indication: PRODUCT USED FOR UNKNOWN INDICATION
     Route: 054
  3. SALOFALK [Suspect]
     Active Substance: MESALAMINE
     Indication: PRODUCT USED FOR UNKNOWN INDICATION
     Route: 048
  4. HYOSCINE (HYOSCINE) UNKNOWN [Concomitant]

REACTIONS (9)
  - Neck pain [None]
  - Troponin increased [None]
  - Syncope [None]
  - Cough [None]
  - Chest pain [None]
  - Pleuritic pain [None]
  - Pyrexia [None]
  - Oropharyngeal pain [None]
  - Myocarditis [None]
